FAERS Safety Report 7381598-0 (Version None)
Quarter: 2011Q1

REPORT INFORMATION
  Report Type: 
  Country: None (occurrence: None)
  Receive Date: 20110329
  Receipt Date: 20110323
  Transmission Date: 20110831
  Serious: Yes (Other)
  Sender: FDA-Public Use
  Company Number: IT-BRISTOL-MYERS SQUIBB COMPANY-15631906

PATIENT
  Age: 35 Year
  Sex: Female

DRUGS (1)
  1. ABILIFY [Suspect]
     Indication: PERSECUTORY DELUSION
     Dosage: 1DF: 10-5 MG TAKEN SINCE 3 YEARS

REACTIONS (2)
  - HEPATIC STEATOSIS [None]
  - TRANSAMINASES INCREASED [None]
